FAERS Safety Report 9418712 (Version 3)
Quarter: 2013Q3

REPORT INFORMATION
  Report Type: Spontaneous
  Country: BR (occurrence: BR)
  Receive Date: 20130725
  Receipt Date: 20130913
  Transmission Date: 20140515
  Serious: Yes (Other)
  Sender: FDA-Public Use
  Company Number: BR-ROCHE-1170311

PATIENT
  Sex: Female
  Weight: 58 kg

DRUGS (9)
  1. RIVOTRIL [Suspect]
     Indication: INSOMNIA
     Route: 048
  2. RIVOTRIL [Suspect]
     Route: 048
  3. CLONAZEPAM [Suspect]
     Indication: INSOMNIA
     Route: 065
  4. MIRTAZAPINE [Suspect]
     Indication: DEPRESSION
     Route: 065
  5. MIRTAZAPINE [Suspect]
     Indication: PANIC ATTACK
  6. MIRTAZAPINE [Suspect]
     Indication: INSOMNIA
  7. SEROQUEL [Suspect]
     Indication: INSOMNIA
     Route: 065
  8. CRESTOR [Concomitant]
     Indication: BLOOD CHOLESTEROL ABNORMAL
     Route: 065
  9. BUSCOPAN [Concomitant]

REACTIONS (19)
  - Depression [Not Recovered/Not Resolved]
  - Panic attack [Unknown]
  - Insomnia [Recovered/Resolved]
  - Dysgeusia [Unknown]
  - Blood cholesterol abnormal [Not Recovered/Not Resolved]
  - Decreased appetite [Recovered/Resolved]
  - Weight decreased [Unknown]
  - Weight increased [Unknown]
  - Nervousness [Not Recovered/Not Resolved]
  - Thinking abnormal [Not Recovered/Not Resolved]
  - Pharyngitis [Recovered/Resolved]
  - Ear infection [Recovered/Resolved]
  - Malaise [Unknown]
  - Thinking abnormal [Unknown]
  - Paranoia [Unknown]
  - Drug ineffective [Unknown]
  - Vomiting [Unknown]
  - Myalgia [Not Recovered/Not Resolved]
  - Sciatica [Not Recovered/Not Resolved]
